FAERS Safety Report 4545229-7 (Version None)
Quarter: 2005Q1

REPORT INFORMATION
  Report Type: 
  Country: None (occurrence: None)
  Receive Date: 20050103
  Receipt Date: 20020315
  Transmission Date: 20050727
  Serious: Yes (Life-Threatening)
  Sender: FDA-Public Use
  Company Number: 2002-DE-00674ZA

PATIENT
  Age: 36 Year
  Sex: Male

DRUGS (3)
  1. VIRAMUNE [Suspect]
     Indication: HIV INFECTION
     Dosage: 200 MG (200 MG) PO; 400 MG (200 MG) PO
     Route: 048
     Dates: start: 20011212, end: 20011225
  2. VIRAMUNE [Suspect]
     Indication: HIV INFECTION
     Dosage: 200 MG (200 MG) PO; 400 MG (200 MG) PO
     Route: 048
     Dates: start: 20011226, end: 20020103
  3. COMBIVIR (ANTIVIRALS FOR SYSTEMIC USE) (TA) [Concomitant]

REACTIONS (4)
  - HEADACHE [None]
  - HEPATOTOXICITY [None]
  - RASH GENERALISED [None]
  - RASH PRURITIC [None]
